FAERS Safety Report 8888323 (Version 1)
Quarter: 2012Q4

REPORT INFORMATION
  Report Type: 
  Country: US (occurrence: US)
  Receive Date: 20121106
  Receipt Date: 20121106
  Transmission Date: 20130627
  Serious: No
  Sender: FDA-Public Use
  Company Number: US-ENDO PHARMACEUTICALS INC.-HCDA20120100

PATIENT
  Age: 89 None
  Sex: Male

DRUGS (1)
  1. HYDROCODONE/ACETAMINOPHEN 10MG/500MG [Suspect]
     Indication: PAIN
     Dosage: 10MG/500MG
     Route: 048
     Dates: start: 201208, end: 20121014

REACTIONS (3)
  - Death [Fatal]
  - Fall [Recovered/Resolved]
  - Somnolence [Unknown]
